FAERS Safety Report 4504931-3 (Version None)
Quarter: 2004Q4

REPORT INFORMATION
  Report Type: 
  Country: None (occurrence: None)
  Receive Date: 20041020
  Receipt Date: 20040621
  Transmission Date: 20050328
  Serious: No
  Sender: FDA-Public Use
  Company Number: 2004-06-1518

PATIENT
  Age: 74 Year
  Sex: Female
  Weight: 76.2043 kg

DRUGS (1)
  1. CLARINEX [Suspect]
     Dosage: 5 MG ORAL; 2 DOSE(S)
     Route: 048

REACTIONS (3)
  - FEELING ABNORMAL [None]
  - HEART RATE IRREGULAR [None]
  - TACHYCARDIA [None]
